FAERS Safety Report 8160447-7 (Version None)
Quarter: 2012Q1

REPORT INFORMATION
  Report Type: 
  Country: None (occurrence: None)
  Receive Date: 20120223
  Receipt Date: 20120215
  Transmission Date: 20120608
  Serious: Yes (Hospitalization)
  Sender: FDA-Public Use
  Company Number: US-US-EMD SERONO, INC.-7017802

PATIENT
  Sex: Female
  Weight: 86 kg

DRUGS (6)
  1. REBIF [Suspect]
     Indication: MULTIPLE SCLEROSIS
     Route: 058
     Dates: start: 20050103
  2. NASONEX [Concomitant]
     Indication: HYPERSENSITIVITY
  3. SYNTHROID [Concomitant]
     Indication: HYPOTHYROIDISM
  4. GABAPENTIN [Concomitant]
     Indication: PAIN
  5. LIPITOR [Concomitant]
     Indication: BLOOD CHOLESTEROL INCREASED
  6. BACLOFEN [Concomitant]
     Indication: MUSCLE SPASTICITY

REACTIONS (6)
  - CELLULITIS [None]
  - FACE INJURY [None]
  - FALL [None]
  - FATIGUE [None]
  - LIMB INJURY [None]
  - CONTUSION [None]
